FAERS Safety Report 14784235 (Version 2)
Quarter: 2018Q2

REPORT INFORMATION
  Report Type: Report from Study
  Country: BE (occurrence: BE)
  Receive Date: 20180420
  Receipt Date: 20180503
  Transmission Date: 20180711
  Serious: Yes (Death, Life-Threatening, Hospitalization, Other)
  Sender: FDA-Public Use
  Company Number: BE-PFIZER INC-2018159435

PATIENT
  Age: 68 Year
  Sex: Male
  Weight: 75 kg

DRUGS (5)
  1. INCB039110 [Suspect]
     Active Substance: INVESTIGATIONAL PRODUCT
     Indication: GRAFT VERSUS HOST DISEASE
     Dosage: 200 MG, DAILY
     Route: 048
     Dates: start: 20180214, end: 20180308
  2. INCB039110 [Suspect]
     Active Substance: INVESTIGATIONAL PRODUCT
     Dosage: 100 MG, DAILY
     Route: 048
     Dates: start: 20180309, end: 20180319
  3. MEDROL [Suspect]
     Active Substance: METHYLPREDNISOLONE
     Indication: GRAFT VERSUS HOST DISEASE
     Dosage: PRN BID
     Route: 048
     Dates: start: 20180214
  4. MEDROL [Suspect]
     Active Substance: METHYLPREDNISOLONE
     Dosage: 64 MG, QD
     Route: 048
     Dates: start: 20180308
  5. INCB039110 [Suspect]
     Active Substance: INVESTIGATIONAL PRODUCT
     Dosage: 200 MG, DAILY
     Route: 048
     Dates: start: 20180320, end: 20180329

REACTIONS (6)
  - Multiple organ dysfunction syndrome [Fatal]
  - Renal failure [Not Recovered/Not Resolved]
  - Diabetes mellitus [Not Recovered/Not Resolved]
  - Fungal infection [Unknown]
  - Staphylococcal sepsis [Not Recovered/Not Resolved]
  - C-reactive protein increased [Not Recovered/Not Resolved]

NARRATIVE: CASE EVENT DATE: 20180308
